FAERS Safety Report 4940843-9 (Version None)
Quarter: 2006Q1

REPORT INFORMATION
  Report Type: 
  Country: None (occurrence: None)
  Receive Date: 20060307
  Receipt Date: 20060220
  Transmission Date: 20060701
  Serious: Yes (Hospitalization, Other)
  Sender: FDA-Public Use
  Company Number: 2006AL000500

PATIENT
  Age: 61 Year
  Sex: Female

DRUGS (2)
  1. PROPYLTHIOURACIL TABLETS, 50 MG (PUREPAC) (PROPYLTHIOURACIL TABLETS, 5 [Suspect]
     Indication: HYPOTHYROIDISM
     Dosage: 300 MG; QD; PO
     Route: 048
     Dates: start: 19950101
  2. PROPYLTHIOURACIL TABLETS, 50 MG (PUREPAC) (PROPYLTHIOURACIL TABLETS, 5 [Suspect]
     Indication: TOXIC NODULAR GOITRE
     Dosage: 300 MG; QD; PO
     Route: 048
     Dates: start: 19950101

REACTIONS (26)
  - ANOREXIA [None]
  - ANTINEUTROPHIL CYTOPLASMIC ANTIBODY INCREASED [None]
  - ANTINUCLEAR ANTIBODY POSITIVE [None]
  - ARTHRALGIA [None]
  - BLOOD ALBUMIN DECREASED [None]
  - BLOOD THYROID STIMULATING HORMONE DECREASED [None]
  - BLOOD UREA INCREASED [None]
  - C-REACTIVE PROTEIN INCREASED [None]
  - CREPITATIONS [None]
  - DYSPNOEA [None]
  - FATIGUE [None]
  - HAEMOGLOBIN DECREASED [None]
  - IMMUNOGLOBULINS INCREASED [None]
  - LUPUS-LIKE SYNDROME [None]
  - MYALGIA [None]
  - OEDEMA PERIPHERAL [None]
  - PERICARDIAL DISEASE [None]
  - PERICARDIAL EFFUSION [None]
  - PLATELET COUNT INCREASED [None]
  - PLEURAL EFFUSION [None]
  - PYODERMA GANGRENOSUM [None]
  - PYREXIA [None]
  - RASH ERYTHEMATOUS [None]
  - RED BLOOD CELL SEDIMENTATION RATE INCREASED [None]
  - SKIN ULCER [None]
  - WHITE BLOOD CELL COUNT INCREASED [None]
